FAERS Safety Report 8533438-1 (Version None)
Quarter: 2012Q3

REPORT INFORMATION
  Report Type: 
  Country: None (occurrence: None)
  Receive Date: 20120724
  Receipt Date: 20120719
  Transmission Date: 20120928
  Serious: Yes (Hospitalization)
  Sender: FDA-Public Use
  Company Number: FR-BAYER-2012-073040

PATIENT
  Age: 43 Year
  Sex: Female
  Weight: 117 kg

DRUGS (3)
  1. MIRENA [Suspect]
     Dosage: 20 ?G/D, CONT
     Route: 015
     Dates: start: 20040601, end: 20110301
  2. ANDROCUR [Suspect]
     Indication: HIRSUTISM
     Dosage: UNK
     Dates: start: 20110301, end: 20120101
  3. MIRENA [Suspect]
     Dosage: 20 ?G/D, CONT
     Route: 015
     Dates: start: 20110301

REACTIONS (2)
  - NO ADVERSE EVENT [None]
  - PULMONARY EMBOLISM [None]
